FAERS Safety Report 22358954 (Version 1)
Quarter: 2023Q2

REPORT INFORMATION
  Report Type: Spontaneous
  Country: US (occurrence: US)
  Receive Date: 20230524
  Receipt Date: 20230524
  Transmission Date: 20230722
  Serious: No
  Sender: FDA-Public Use
  Company Number: US-ELI_LILLY_AND_COMPANY-US202305013049

PATIENT
  Sex: Female

DRUGS (2)
  1. MOUNJARO [Suspect]
     Active Substance: TIRZEPATIDE
     Indication: Product used for unknown indication
     Dosage: 2.5 MG, UNKNOWN
     Route: 065
  2. LEVATOL [Concomitant]
     Active Substance: PENBUTOLOL SULFATE
     Indication: Blood pressure measurement
     Dosage: UNK
     Dates: start: 20230522

REACTIONS (1)
  - Back pain [Unknown]
